FAERS Safety Report 19860092 (Version 1)
Quarter: 2021Q3

REPORT INFORMATION
  Report Type: Spontaneous
  Country: CA (occurrence: CA)
  Receive Date: 20210920
  Receipt Date: 20210920
  Transmission Date: 20211014
  Serious: Yes (Other)
  Sender: FDA-Public Use
  Company Number: CA-TEVA-2021-CA-1954474

PATIENT
  Age: 79 Year
  Sex: Male

DRUGS (12)
  1. CALCIUM CHLORIDE/POTASSIUM CHLORIDE/SODIUM LACTATE [Suspect]
     Active Substance: CALCIUM CHLORIDE\POTASSIUM CHLORIDE\SODIUM LACTATE
     Indication: PRODUCT USED FOR UNKNOWN INDICATION
     Route: 065
  2. MIDAZOLAM. [Suspect]
     Active Substance: MIDAZOLAM
     Indication: PRODUCT USED FOR UNKNOWN INDICATION
     Route: 065
  3. ALBUMIN (HUMAN) [Suspect]
     Active Substance: ALBUMIN HUMAN
     Indication: PRODUCT USED FOR UNKNOWN INDICATION
     Route: 065
  4. TRANDATE [Suspect]
     Active Substance: LABETALOL HYDROCHLORIDE
     Indication: PRODUCT USED FOR UNKNOWN INDICATION
     Route: 065
  5. PROPOFOL. [Suspect]
     Active Substance: PROPOFOL
     Indication: PRODUCT USED FOR UNKNOWN INDICATION
     Route: 065
  6. LIDOCAINE. [Suspect]
     Active Substance: LIDOCAINE
     Indication: PRODUCT USED FOR UNKNOWN INDICATION
     Route: 065
  7. ROBINUL [Suspect]
     Active Substance: GLYCOPYRROLATE
     Indication: PRODUCT USED FOR UNKNOWN INDICATION
     Route: 065
  8. SUFENTANIL CITRATE. [Suspect]
     Active Substance: SUFENTANIL CITRATE
     Indication: PRODUCT USED FOR UNKNOWN INDICATION
     Route: 065
  9. ROCURONIUM [Suspect]
     Active Substance: ROCURONIUM BROMIDE
     Indication: PRODUCT USED FOR UNKNOWN INDICATION
     Route: 065
  10. CEFAZOLIN [Suspect]
     Active Substance: CEFAZOLIN
     Indication: PRODUCT USED FOR UNKNOWN INDICATION
     Route: 042
  11. EPHEDRINE HCL [Suspect]
     Active Substance: EPHEDRINE HYDROCHLORIDE
     Indication: PRODUCT USED FOR UNKNOWN INDICATION
     Route: 065
  12. HEPARIN SODIUM. [Suspect]
     Active Substance: HEPARIN SODIUM
     Route: 065

REACTIONS (5)
  - Anaphylactic reaction [Not Recovered/Not Resolved]
  - Tachycardia [Not Recovered/Not Resolved]
  - Dermatitis allergic [Not Recovered/Not Resolved]
  - Haemodynamic instability [Not Recovered/Not Resolved]
  - Hypotension [Not Recovered/Not Resolved]
